FAERS Safety Report 23842821 (Version 3)
Quarter: 2024Q2

REPORT INFORMATION
  Report Type: Report from Study
  Country: US (occurrence: US)
  Receive Date: 20240510
  Receipt Date: 20240528
  Transmission Date: 20240716
  Serious: Yes (Hospitalization, Other)
  Sender: FDA-Public Use
  Company Number: US-ALNYLAM PHARMACEUTICALS, INC.-ALN-2024-002594

PATIENT

DRUGS (1)
  1. AMVUTTRA [Suspect]
     Active Substance: VUTRISIRAN
     Indication: Hereditary neuropathic amyloidosis
     Dosage: UNK
     Route: 065
     Dates: start: 20230123, end: 20230123

REACTIONS (5)
  - Hypotension [Unknown]
  - Kidney infection [Unknown]
  - Blood pressure increased [Unknown]
  - Therapy interrupted [Unknown]
  - Parenteral nutrition [Unknown]
